FAERS Safety Report 7028861-0 (Version None)
Quarter: 2010Q4

REPORT INFORMATION
  Report Type: 
  Country: None (occurrence: None)
  Receive Date: 20101005
  Receipt Date: 20101004
  Transmission Date: 20110411
  Serious: Yes (Other)
  Sender: FDA-Public Use
  Company Number: GB-BRISTOL-MYERS SQUIBB COMPANY-15291198

PATIENT
  Age: 15 Year
  Sex: Male
  Weight: 76 kg

DRUGS (2)
  1. ABILIFY [Suspect]
     Indication: SCHIZOPHRENIA
     Route: 048
     Dates: start: 20100101
  2. OLANZAPINE [Suspect]
     Indication: SCHIZOPHRENIA
     Dosage: OLANZAPINE HAS TAKEN FOR NUMBER OF YEARS AND STOPPED A WEEK PRIOR TO THE REPORT.
     Route: 048
     Dates: end: 20100901

REACTIONS (2)
  - HYPOTHYROIDISM [None]
  - WEIGHT INCREASED [None]
